FAERS Safety Report 7446937-0 (Version None)
Quarter: 2011Q2

REPORT INFORMATION
  Report Type: 
  Country: None (occurrence: None)
  Receive Date: 20110429
  Receipt Date: 20101115
  Transmission Date: 20111010
  Serious: No
  Sender: FDA-Public Use
  Company Number: US-ASTRAZENECA-2010SE54507

PATIENT
  Sex: Female

DRUGS (2)
  1. NEXIUM [Suspect]
     Route: 048
  2. CRESTOR [Suspect]
     Route: 048

REACTIONS (8)
  - OESOPHAGEAL PAIN [None]
  - THROAT IRRITATION [None]
  - CARDIAC DISORDER [None]
  - NEUROPATHY PERIPHERAL [None]
  - DRUG DOSE OMISSION [None]
  - ARTHRITIS [None]
  - FALL [None]
  - MUSCULOSKELETAL DISCOMFORT [None]
